FAERS Safety Report 5093434-6 (Version None)
Quarter: 2006Q3

REPORT INFORMATION
  Report Type: 
  Country: None (occurrence: None)
  Receive Date: 20060829
  Receipt Date: 20060810
  Transmission Date: 20061208
  Serious: Yes (Other)
  Sender: FDA-Public Use
  Company Number: S06-CAN-03080-01

PATIENT
  Age: 74 Year
  Sex: Female

DRUGS (6)
  1. CELEXA [Suspect]
     Dosage: 10 MG QD PO
     Route: 048
     Dates: start: 20060719
  2. CELEXA [Suspect]
     Dosage: 30 MG QD PO
     Route: 048
  3. COUMADIN [Suspect]
     Dosage: 3 MG QD PO
     Route: 048
     Dates: end: 20060719
  4. COUMADIN [Suspect]
     Dosage: 5 MG TIW PO
     Route: 048
     Dates: start: 20060721
  5. COUMADIN [Suspect]
     Dosage: 1.5 MG QID PO
     Route: 048
     Dates: start: 20060721
  6. CRANBERRY JUICE (VACCINIUM MACROCARPON) [Suspect]
     Indication: URINARY TRACT INFECTION
     Dates: end: 20060719

REACTIONS (1)
  - INTERNATIONAL NORMALISED RATIO INCREASED [None]
